FAERS Safety Report 25040061 (Version 1)
Quarter: 2025Q1

REPORT INFORMATION
  Report Type: Other
  Country: AU (occurrence: AU)
  Receive Date: 20250305
  Receipt Date: 20250305
  Transmission Date: 20250409
  Serious: Yes (Other)
  Sender: DEXCEL LTD.
  Company Number: AU-DEXPHARM-2025-1116

PATIENT

DRUGS (1)
  1. TOFACITINIB [Suspect]
     Active Substance: TOFACITINIB
     Indication: Alopecia areata

REACTIONS (2)
  - Pancreatitis acute [Recovered/Resolved]
  - Off label use [Recovered/Resolved]
